FAERS Safety Report 12235909 (Version 7)
Quarter: 2019Q2

REPORT INFORMATION
  Report Type: Report from Study
  Country: US (occurrence: US)
  Receive Date: 20160404
  Receipt Date: 20190614
  Transmission Date: 20190711
  Serious: Yes (Hospitalization, Other)
  Sender: FDA-Public Use
  Company Number: US-ACTELION-A-NJ2016-133732

PATIENT
  Age: 74 Year
  Sex: Male

DRUGS (1)
  1. OPSUMIT [Suspect]
     Active Substance: MACITENTAN
     Indication: PULMONARY ARTERIAL HYPERTENSION
     Dosage: 10 MG, QD
     Route: 048
     Dates: start: 20150225

REACTIONS (12)
  - Palpitations [Unknown]
  - Haemoglobin decreased [Unknown]
  - Atrial flutter [Recovered/Resolved]
  - Dyspnoea exertional [Unknown]
  - Arthralgia [Unknown]
  - General physical health deterioration [Unknown]
  - Oedema peripheral [Recovered/Resolved]
  - Blood potassium decreased [Unknown]
  - Hypotension [Unknown]
  - Dehydration [Unknown]
  - Electrocardiogram QT interval [Unknown]
  - Dizziness [Unknown]

NARRATIVE: CASE EVENT DATE: 201508
